FAERS Safety Report 22197036 (Version 2)
Quarter: 2023Q4

REPORT INFORMATION
  Report Type: Report from Study
  Country: US (occurrence: US)
  Receive Date: 20230411
  Receipt Date: 20231103
  Transmission Date: 20240110
  Serious: Yes (Hospitalization)
  Sender: FDA-Public Use
  Company Number: US-Merck Healthcare KGaA-9394599

PATIENT
  Age: 39 Year
  Sex: Female

DRUGS (2)
  1. MAVENCLAD [Suspect]
     Active Substance: CLADRIBINE
     Indication: Multiple sclerosis
     Dosage: YEAR ONE MONTH ONE THERAPY
     Route: 048
     Dates: start: 20230315
  2. OCREVUS [Suspect]
     Active Substance: OCRELIZUMAB
     Indication: Product used for unknown indication
     Dates: start: 20190123, end: 20220705

REACTIONS (5)
  - Cerebrovascular accident [Unknown]
  - Balance disorder [Unknown]
  - Fine motor skill dysfunction [Unknown]
  - Aphasia [Unknown]
  - Dysarthria [Unknown]

NARRATIVE: CASE EVENT DATE: 20230322
